FAERS Safety Report 7205071-5 (Version None)
Quarter: 2010Q4

REPORT INFORMATION
  Report Type: 
  Country: None (occurrence: None)
  Receive Date: 20101230
  Receipt Date: 20101229
  Transmission Date: 20110411
  Serious: Yes (Other)
  Sender: FDA-Public Use
  Company Number: US-AMGEN-USASP2010012358

PATIENT

DRUGS (3)
  1. PROLIA [Suspect]
     Indication: OSTEOPOROSIS POSTMENOPAUSAL
     Dates: start: 20101228
  2. PREMARIN [Concomitant]
  3. CLARINEX                           /01202601/ [Concomitant]

REACTIONS (5)
  - COUGH [None]
  - DIARRHOEA [None]
  - NERVOUSNESS [None]
  - PALPITATIONS [None]
  - VISUAL IMPAIRMENT [None]
